FAERS Safety Report 5633485-3 (Version None)
Quarter: 2008Q1

REPORT INFORMATION
  Report Type: 
  Country: None (occurrence: None)
  Receive Date: 20080221
  Receipt Date: 20080213
  Transmission Date: 20080703
  Serious: Yes (Other)
  Sender: FDA-Public Use
  Company Number: US-ROCHE-247918

PATIENT
  Sex: Female

DRUGS (1)
  1. TORADOL [Suspect]
     Route: 048
     Dates: start: 19930801

REACTIONS (4)
  - ANAPHYLACTIC REACTION [None]
  - ASTHMA [None]
  - CONVULSION [None]
  - MULTIPLE SCLEROSIS [None]
